FAERS Safety Report 7148377-0 (Version None)
Quarter: 2010Q4

REPORT INFORMATION
  Report Type: 
  Country: None (occurrence: None)
  Receive Date: 20101124
  Receipt Date: 20101117
  Transmission Date: 20110411
  Serious: Yes (Other)
  Sender: FDA-Public Use
  Company Number: 2010SP060672

PATIENT
  Age: 20 Year
  Sex: Male
  Weight: 52 kg

DRUGS (2)
  1. NOXAFIL [Suspect]
     Indication: CHRONIC GRANULOMATOUS DISEASE
     Dosage: 7.5 ML;BID;PO
     Route: 048
     Dates: start: 20080323, end: 20101111
  2. COTRIM [Concomitant]

REACTIONS (1)
  - CONGESTIVE CARDIOMYOPATHY [None]
